FAERS Safety Report 9979931 (Version 1)
Quarter: 2014Q1

REPORT INFORMATION
  Report Type: Report from Study
  Country: US (occurrence: US)
  Receive Date: 20140307
  Receipt Date: 20140307
  Transmission Date: 20141002
  Serious: No
  Sender: FDA-Public Use
  Company Number: US-ABBVIE-13P-163-1175480-00

PATIENT
  Age: 82 Year
  Sex: Female

DRUGS (5)
  1. HUMIRA [Suspect]
     Indication: COLITIS ULCERATIVE
     Dates: start: 20131115, end: 20131115
  2. HUMIRA [Suspect]
     Dates: start: 20131129, end: 20131129
  3. HUMIRA [Suspect]
  4. ZOFRAN [Concomitant]
     Indication: NAUSEA
  5. DICYCLOMINE [Concomitant]
     Indication: MUSCLE SPASMS

REACTIONS (2)
  - Nausea [Not Recovered/Not Resolved]
  - Muscle spasms [Not Recovered/Not Resolved]
